FAERS Safety Report 5796019-9 (Version None)
Quarter: 2008Q3

REPORT INFORMATION
  Report Type: 
  Country: None (occurrence: None)
  Receive Date: 20080701
  Receipt Date: 20080618
  Transmission Date: 20090109
  Serious: Yes (Other)
  Sender: FDA-Public Use
  Company Number: FI-ROCHE-571338

PATIENT
  Sex: Male

DRUGS (3)
  1. XELODA [Suspect]
     Route: 065
     Dates: start: 20071106, end: 20080415
  2. AVASTIN [Concomitant]
     Dates: start: 20071106, end: 20080415
  3. OXALIPLATIN [Concomitant]
     Dates: start: 20071106, end: 20080415

REACTIONS (1)
  - DUPUYTREN'S CONTRACTURE [None]
